FAERS Safety Report 18735891 (Version 1)
Quarter: 2021Q1

REPORT INFORMATION
  Report Type: Spontaneous
  Country: FR (occurrence: FR)
  Receive Date: 20210113
  Receipt Date: 20210113
  Transmission Date: 20210419
  Serious: Yes (Hospitalization)
  Sender: FDA-Public Use
  Company Number: FR-EISAI MEDICAL RESEARCH-EC-2021-086065

PATIENT
  Age: 32 Year
  Sex: Female

DRUGS (8)
  1. ZONEGRAN [Concomitant]
     Active Substance: ZONISAMIDE
     Indication: PARTIAL SEIZURES
     Route: 048
     Dates: start: 2009
  2. URBANYL [Concomitant]
     Active Substance: CLOBAZAM
     Dosage: 10 MG DAILY (FREQUENCY UNKNOWN)
     Route: 048
     Dates: start: 20200810
  3. ELIQUIS [Concomitant]
     Active Substance: APIXABAN
     Indication: ANTITHROMBIN III DEFICIENCY
     Dosage: 10 MG DAILY (FREQUENCY UNKNOWN)
     Route: 048
  4. FYCOMPA [Suspect]
     Active Substance: PERAMPANEL
     Indication: PARTIAL SEIZURES
     Route: 048
     Dates: start: 20200310, end: 2020
  5. FYCOMPA [Suspect]
     Active Substance: PERAMPANEL
     Route: 048
     Dates: start: 2020, end: 202005
  6. FYCOMPA [Suspect]
     Active Substance: PERAMPANEL
     Route: 048
     Dates: start: 202005, end: 20200810
  7. VIMPAT [Concomitant]
     Active Substance: LACOSAMIDE
     Indication: PARTIAL SEIZURES
     Route: 048
  8. URBANYL [Concomitant]
     Active Substance: CLOBAZAM
     Indication: PARTIAL SEIZURES
     Dosage: 10 MG DAILY (FREQUENCY UNKNOWN)
     Route: 048
     Dates: end: 2020

REACTIONS (4)
  - Fall [Recovered/Resolved]
  - Incorrect dose administered [Recovered/Resolved]
  - Psychotic disorder [Recovering/Resolving]
  - Drug withdrawal convulsions [Recovering/Resolving]

NARRATIVE: CASE EVENT DATE: 2020
